FAERS Safety Report 5274073-0 (Version None)
Quarter: 2007Q1

REPORT INFORMATION
  Report Type: 
  Country: None (occurrence: None)
  Receive Date: 20070323
  Receipt Date: 20070312
  Transmission Date: 20070707
  Serious: Yes (Hospitalization)
  Sender: FDA-Public Use
  Company Number: US-MERCK-0703USA03878

PATIENT
  Age: 77 Year
  Sex: Female

DRUGS (1)
  1. INDOCIN [Suspect]
     Indication: PERICARDITIS
     Route: 048
     Dates: start: 20020901, end: 20020901

REACTIONS (3)
  - ANAEMIA [None]
  - GASTRITIS HAEMORRHAGIC [None]
  - PERICARDIAL DISEASE [None]
